FAERS Safety Report 17889490 (Version 3)
Quarter: 2020Q2

REPORT INFORMATION
  Report Type: Report from Study
  Country: CO (occurrence: CO)
  Receive Date: 20200612
  Receipt Date: 20200617
  Transmission Date: 20200714
  Serious: Yes (Death, Hospitalization)
  Sender: FDA-Public Use
  Company Number: NVSC2020CO079305

PATIENT
  Weight: 32 kg

DRUGS (1)
  1. JADENU [Suspect]
     Active Substance: DEFERASIROX
     Indication: IRON OVERLOAD
     Dosage: 540 MG, QD ((TABLET OF 180 MG)
     Route: 048
     Dates: start: 20180420, end: 20200316

REACTIONS (8)
  - Small intestinal haemorrhage [Fatal]
  - Blood pressure increased [Unknown]
  - Tachycardia [Unknown]
  - Pyrexia [Unknown]
  - Graft versus host disease [Unknown]
  - Pneumonia [Unknown]
  - Immunodeficiency [Unknown]
  - Infection [Unknown]
